FAERS Safety Report 7058150-X (Version None)
Quarter: 2010Q4

REPORT INFORMATION
  Report Type: 
  Country: None (occurrence: None)
  Receive Date: 20101022
  Receipt Date: 20101020
  Transmission Date: 20110411
  Serious: Yes (Other)
  Sender: FDA-Public Use
  Company Number: US-BRISTOL-MYERS SQUIBB COMPANY-15345895

PATIENT
  Age: 30 Year
  Sex: Female

DRUGS (6)
  1. CISPLATIN [Suspect]
     Indication: GERM CELL CANCER
     Dosage: 3 CYCLES CUMULATIVE DOSE: 300 MG/M2
  2. ETOPOSIDE [Suspect]
     Indication: GERM CELL CANCER
     Dosage: 3 CYCLES,2 CYCLES RE-INTRODUCTION CHEMOTHERAPY CUMULATIVE DOSE: 3,050 MG/M2
  3. BLEOMYCIN SULFATE [Suspect]
     Indication: GERM CELL CANCER
     Dosage: 3 CYCLES CUMULATIVE DOSE: 270 MG/M2
  4. CARBOPLATIN [Suspect]
     Indication: GERM CELL CANCER
     Dosage: 2 CYCLES OF RE-INTRODUCTION CHEMOTHERAPY CUMULATIVE DOSE: 2,300 MG/M2
  5. RADIATION THERAPY [Suspect]
     Indication: GERM CELL CANCER
     Dosage: 1 DF=4,500 CGY
  6. THIOTEPA [Suspect]
     Indication: GERM CELL CANCER
     Dosage: CUMULATIVE DOSE: 900 MG/M2

REACTIONS (10)
  - ADRENAL INSUFFICIENCY [None]
  - COGNITIVE DISORDER [None]
  - DEPRESSION [None]
  - DIABETES INSIPIDUS [None]
  - DIABETES MELLITUS [None]
  - HYPOPITUITARISM [None]
  - HYPOTHYROIDISM [None]
  - MALIGNANT NEOPLASM PROGRESSION [None]
  - OSTEOPENIA [None]
  - OTOTOXICITY [None]
